FAERS Safety Report 17356023 (Version 1)
Quarter: 2020Q1

REPORT INFORMATION
  Report Type: Spontaneous
  Country: US (occurrence: US)
  Receive Date: 20200131
  Receipt Date: 20200131
  Transmission Date: 20200409
  Serious: Yes (Death, Hospitalization, Other)
  Sender: FDA-Public Use
  Company Number: US-HIKMA PHARMACEUTICALS USA INC.-US-H14001-20-00243

PATIENT
  Age: 41 Year
  Sex: Female
  Weight: 72.6 kg

DRUGS (8)
  1. DRONABINOL. [Concomitant]
     Active Substance: DRONABINOL
     Indication: NAUSEA
     Route: 048
     Dates: start: 20191016, end: 20191217
  2. CYTARABINE. [Suspect]
     Active Substance: CYTARABINE
     Indication: ACUTE MYELOID LEUKAEMIA
     Route: 041
     Dates: start: 20191005, end: 20191012
  3. PF-04449913 [Suspect]
     Active Substance: GLASDEGIB
     Indication: ACUTE MYELOID LEUKAEMIA
     Route: 048
     Dates: start: 20191005, end: 20191223
  4. CYTARABINE. [Suspect]
     Active Substance: CYTARABINE
     Route: 042
     Dates: start: 20191110, end: 20191113
  5. TRANEXAMIC [Concomitant]
     Active Substance: TRANEXAMIC ACID
     Indication: PROPHYLAXIS
     Route: 048
     Dates: start: 20191020, end: 20191212
  6. OXYCODONE [Concomitant]
     Active Substance: OXYCODONE
     Indication: PAIN
     Route: 048
     Dates: start: 20191022, end: 20191217
  7. DAUNORUBICIN [Suspect]
     Active Substance: DAUNORUBICIN
     Indication: ACUTE MYELOID LEUKAEMIA
     Route: 041
     Dates: start: 20191005, end: 20191007
  8. MEDROXYPROGESTERON [Concomitant]
     Active Substance: MEDROXYPROGESTERONE ACETATE
     Indication: PROPHYLAXIS
     Route: 048
     Dates: start: 20191007, end: 20191212

REACTIONS (9)
  - Mucosal haemorrhage [Unknown]
  - Hyperkalaemia [Unknown]
  - Enterobacter bacteraemia [Unknown]
  - Blood lactate dehydrogenase increased [Unknown]
  - Neutropenic sepsis [Fatal]
  - Septic shock [Fatal]
  - Acidosis [Unknown]
  - Acute kidney injury [Unknown]
  - Acute respiratory failure [Unknown]

NARRATIVE: CASE EVENT DATE: 20191223
